FAERS Safety Report 10063220 (Version 3)
Quarter: 2015Q2

REPORT INFORMATION
  Report Type: Spontaneous
  Country: US (occurrence: US)
  Receive Date: 20140407
  Receipt Date: 20150505
  Transmission Date: 20150821
  Serious: Yes (Death, Life-Threatening, Hospitalization, Other)
  Sender: FDA-Public Use
  Company Number: US-MERCK-1404USA003900

PATIENT
  Sex: Female
  Weight: 58.96 kg

DRUGS (2)
  1. JANUVIA [Suspect]
     Active Substance: SITAGLIPTIN PHOSPHATE
     Indication: TYPE 2 DIABETES MELLITUS
     Dosage: 100 MG, QD
     Route: 048
     Dates: start: 20100221, end: 20120724
  2. JANUVIA [Suspect]
     Active Substance: SITAGLIPTIN PHOSPHATE
     Dosage: 50 MG, QD
     Route: 048
     Dates: start: 20110608, end: 20121204

REACTIONS (25)
  - Small intestine adenocarcinoma [Unknown]
  - Pneumonia [Unknown]
  - Hypersensitivity [Unknown]
  - Hypercholesterolaemia [Unknown]
  - Pruritus [Unknown]
  - Pancreatic carcinoma [Fatal]
  - Cholangitis [Unknown]
  - Hypertension [Unknown]
  - Osteoporosis [Unknown]
  - Biliary sphincterotomy [Unknown]
  - Peripheral swelling [Unknown]
  - Pyrexia [Unknown]
  - Ventricular fibrillation [Unknown]
  - Cerebrovascular accident [Unknown]
  - Atrial fibrillation [Unknown]
  - Arthritis [Unknown]
  - Coronary artery disease [Unknown]
  - Gastrooesophageal reflux disease [Unknown]
  - Bile duct stent insertion [Unknown]
  - Coronary artery bypass [Unknown]
  - Peripheral vascular disorder [Unknown]
  - Rib fracture [Unknown]
  - Nocturia [Unknown]
  - Muscular weakness [Unknown]
  - Urinary incontinence [Unknown]

NARRATIVE: CASE EVENT DATE: 2010
